FAERS Safety Report 7567934-0 (Version None)
Quarter: 2011Q2

REPORT INFORMATION
  Report Type: 
  Country: None (occurrence: None)
  Receive Date: 20110616
  Receipt Date: 20110606
  Transmission Date: 20111010
  Serious: Yes (Hospitalization)
  Sender: FDA-Public Use
  Company Number: 1000019307

PATIENT
  Age: 50 Year
  Sex: Male
  Weight: 72 kg

DRUGS (5)
  1. VALIUM (DIAZEPAM) (TABLETS) (DIAZEPAM) [Concomitant]
  2. NICOPATCH (NICOTINE) (POULTICE OR PATCH) (NICOTINE) [Concomitant]
  3. CITALOPRAM HYDROBROMIDE [Suspect]
     Dosage: 20 MG (20 MG,1 IN 1 D),INTRAVENOUS (NOT OTHERWISE SPECIFIED)
     Route: 042
     Dates: start: 20110303, end: 20110307
  4. CITALOPRAM HYDROBROMIDE [Suspect]
     Dosage: ORAL
     Route: 048
     Dates: start: 20110308
  5. VITAMIN B1-B6 (THIAMINE, PYRIDOXINE) (TABLETS) (THIAMINE, PYRIDOXINE) [Concomitant]

REACTIONS (2)
  - INJECTION SITE INFLAMMATION [None]
  - PHLEBITIS SUPERFICIAL [None]
